FAERS Safety Report 5102025-X (Version None)
Quarter: 2006Q3

REPORT INFORMATION
  Report Type: 
  Country: None (occurrence: None)
  Receive Date: 20060907
  Receipt Date: 20060830
  Transmission Date: 20061208
  Serious: Yes (Other)
  Sender: FDA-Public Use
  Company Number: 2006105920

PATIENT
  Age: 15 Year
  Sex: Male
  Weight: 58.9676 kg

DRUGS (1)
  1. BENADRYL (DIPHENHYDRAIME) [Suspect]
     Indication: NASAL CONGESTION
     Dosage: 2 TABLETS ONCE, ORAL
     Route: 048
     Dates: start: 20060829, end: 20060829

REACTIONS (4)
  - FORMICATION [None]
  - INSOMNIA [None]
  - UNEVALUABLE EVENT [None]
  - VISION BLURRED [None]
